FAERS Safety Report 21737319 (Version 1)
Quarter: 2022Q4

REPORT INFORMATION
  Report Type: Spontaneous
  Country: US (occurrence: US)
  Receive Date: 20221216
  Receipt Date: 20221216
  Transmission Date: 20230112
  Serious: No
  Sender: FDA-Public Use
  Company Number: US-ENDO PHARMACEUTICALS INC-2021-013688

PATIENT
  Sex: Male

DRUGS (2)
  1. XIAFLEX [Suspect]
     Active Substance: COLLAGENASE CLOSTRIDIUM HISTOLYTICUM
     Indication: Peyronie^s disease
     Dosage: 0.58 MG, UNKNOWN, (CYCLE ONE, INJECTION TWO)
     Route: 065
     Dates: start: 2021
  2. XIAFLEX [Suspect]
     Active Substance: COLLAGENASE CLOSTRIDIUM HISTOLYTICUM
     Dosage: 0.58 MG, UNKNOWN, (CYCLE ONE, INJECTION ONE)
     Route: 065
     Dates: start: 20211102

REACTIONS (4)
  - Swelling [Unknown]
  - Skin discolouration [Unknown]
  - Contusion [Unknown]
  - Penile contusion [Recovering/Resolving]

NARRATIVE: CASE EVENT DATE: 20210101
